FAERS Safety Report 4406462-8 (Version None)
Quarter: 2004Q3

REPORT INFORMATION
  Report Type: 
  Country: None (occurrence: None)
  Receive Date: 20040716
  Receipt Date: 20040610
  Transmission Date: 20050211
  Serious: Yes (Life-Threatening, Hospitalization)
  Sender: FDA-Public Use
  Company Number: 04P-083-0259351-00

PATIENT
  Age: 7 Year
  Sex: Male

DRUGS (2)
  1. ULTANE [Suspect]
     Indication: SURGERY
     Dosage: INHALATION
     Route: 055
     Dates: start: 20040402, end: 20040420
  2. SUCCINYLCHOLINE CHLORIDE [Suspect]
     Indication: SURGERY
     Dosage: INTRAVENOUS
     Route: 042
     Dates: start: 20040420, end: 20040420

REACTIONS (3)
  - ANAESTHETIC COMPLICATION [None]
  - HYPERTHERMIA MALIGNANT [None]
  - METABOLIC ACIDOSIS [None]
